FAERS Safety Report 8372447-2 (Version None)
Quarter: 2012Q2

REPORT INFORMATION
  Report Type: 
  Country: None (occurrence: None)
  Receive Date: 20120521
  Receipt Date: 20120510
  Transmission Date: 20120825
  Serious: Yes (Death, Congenital Anomaly)
  Sender: FDA-Public Use
  Company Number: US-US-EMD SERONO, INC.-7131511

PATIENT

DRUGS (4)
  1. GANIRELIX ACETATE INJECTION [Suspect]
  2. CHORIOGONADOTROPIN ALFA [Suspect]
     Route: 064
  3. MENOTROPINS [Suspect]
     Route: 064
  4. FOLLITROPIN BETA [Suspect]
     Route: 064

REACTIONS (1)
  - CYTOGENETIC ABNORMALITY [None]
